FAERS Safety Report 4385904-0 (Version None)
Quarter: 2004Q2

REPORT INFORMATION
  Report Type: 
  Country: None (occurrence: None)
  Receive Date: 20040628
  Receipt Date: 20040616
  Transmission Date: 20050107
  Serious: Yes (Death)
  Sender: FDA-Public Use
  Company Number: AU-GLAXOSMITHKLINE-B0336422A

PATIENT
  Age: 24 Year
  Sex: Male

DRUGS (2)
  1. PAROXETINE HCL [Suspect]
     Indication: DEPRESSION
     Route: 065
  2. LITHIUM [Concomitant]
     Indication: DEPRESSION
     Route: 065

REACTIONS (3)
  - ALOPECIA [None]
  - COMPLETED SUICIDE [None]
  - WEIGHT INCREASED [None]
